FAERS Safety Report 9003091 (Version 1)
Quarter: 2013Q1

REPORT INFORMATION
  Report Type: Spontaneous
  Country: US (occurrence: US)
  Receive Date: 20130108
  Receipt Date: 20130108
  Transmission Date: 20140127
  Serious: Yes (Other)
  Sender: FDA-Public Use
  Company Number: US-AMGEN-USASP2013000705

PATIENT
  Sex: Male

DRUGS (2)
  1. ENBREL [Suspect]
     Indication: PSORIASIS
     Dosage: 50 MG, QWK
  2. STELERA [Concomitant]
     Indication: PSORIASIS
     Dosage: 4 INJECTIONS A YEAR
     Route: 058

REACTIONS (5)
  - Hypersensitivity [Unknown]
  - Wheezing [Unknown]
  - Cough [Unknown]
  - Respiratory tract infection [Unknown]
  - Drug ineffective [Unknown]
